FAERS Safety Report 9893554 (Version 2)
Quarter: 2014Q1

REPORT INFORMATION
  Report Type: Spontaneous
  Country: US (occurrence: US)
  Receive Date: 20140213
  Receipt Date: 20140321
  Transmission Date: 20141002
  Serious: No
  Sender: FDA-Public Use
  Company Number: US-009507513-1402USA004475

PATIENT
  Age: 69 Year
  Sex: Female
  Weight: 70.3 kg

DRUGS (2)
  1. MIRALAX [Suspect]
     Indication: CONSTIPATION
     Dosage: UNK, UNKNOWN
     Route: 048
  2. MIRALAX [Suspect]
     Indication: BOWEL PREPARATION
     Dosage: 17 G, QD
     Route: 048
     Dates: start: 2011

REACTIONS (2)
  - Inappropriate schedule of drug administration [Unknown]
  - Product taste abnormal [Unknown]
